FAERS Safety Report 12685625 (Version 1)
Quarter: 2016Q3

REPORT INFORMATION
  Report Type: Other
  Country: US (occurrence: US)
  Receive Date: 20160825
  Receipt Date: 20160825
  Transmission Date: 20161109
  Serious: Yes (Congenital Anomaly, Other)
  Sender: FDA-Public Use
  Company Number: US-MEDAC PHARMA, INC.-1056746

PATIENT
  Sex: Male
  Weight: 1.55 kg

DRUGS (1)
  1. METHOTREXATE. [Suspect]
     Active Substance: METHOTREXATE
     Route: 064

REACTIONS (5)
  - Maternal exposure during pregnancy [Recovered/Resolved with Sequelae]
  - Clinodactyly [Recovered/Resolved with Sequelae]
  - Skull malformation [Recovered/Resolved with Sequelae]
  - Cafe au lait spots [Recovered/Resolved with Sequelae]
  - Craniosynostosis [Recovered/Resolved with Sequelae]
